FAERS Safety Report 5491560-0 (Version None)
Quarter: 2007Q4

REPORT INFORMATION
  Report Type: 
  Country: None (occurrence: None)
  Receive Date: 20071018
  Receipt Date: 20071018
  Transmission Date: 20080405
  Serious: No
  Sender: FDA-Public Use
  Company Number: None

PATIENT
  Sex: Female
  Weight: 92.5338 kg

DRUGS (1)
  1. ZOLPIDEM TARTRATE [Suspect]
     Indication: INSOMNIA
     Dosage: 10MG 1X A DAY ORAL
     Route: 048
     Dates: start: 20070601

REACTIONS (2)
  - MIDDLE INSOMNIA [None]
  - UNEVALUABLE EVENT [None]
